FAERS Safety Report 25755706 (Version 2)
Quarter: 2025Q3

REPORT INFORMATION
  Report Type: Spontaneous
  Country: US (occurrence: US)
  Receive Date: 20250903
  Receipt Date: 20250915
  Transmission Date: 20251020
  Serious: No
  Sender: STALLERGENES
  Company Number: US-STALCOR-2025-AER-02302

PATIENT
  Age: 5 Year
  Sex: Female

DRUGS (1)
  1. PALFORZIA [Suspect]
     Active Substance: PEANUT
     Indication: Food allergy
     Dosage: LAST DISPENSE ON 10-JUN-2025
     Route: 048

REACTIONS (1)
  - Coxsackie viral infection [Recovered/Resolved]

NARRATIVE: CASE EVENT DATE: 20250601
